FAERS Safety Report 9629560 (Version 6)
Quarter: 2015Q2

REPORT INFORMATION
  Report Type: Report from Study
  Country: JP (occurrence: JP)
  Receive Date: 20131017
  Receipt Date: 20150626
  Transmission Date: 20150821
  Serious: Yes (Death, Hospitalization, Other)
  Sender: FDA-Public Use
  Company Number: JP-UCBSA-100230

PATIENT
  Age: 71 Year
  Sex: Female
  Weight: 46.5 kg

DRUGS (13)
  1. PREDNISOLONE. [Suspect]
     Active Substance: PREDNISOLONE
     Indication: RHEUMATOID ARTHRITIS
     Dosage: DAILY DOSE
     Route: 048
     Dates: end: 20130624
  2. LEVOFLOXACIN HEMIHYDRATE [Concomitant]
     Active Substance: LEVOFLOXACIN
     Dates: start: 20130625, end: 20130626
  3. CERTOLIZUMAB PEGOL RA [Suspect]
     Active Substance: CERTOLIZUMAB PEGOL
     Dosage: 200 MG SYRINGE, 400 MG EVERY OTHER WEEK
     Route: 058
     Dates: start: 20130415, end: 20130513
  4. REBAMIPIDE [Concomitant]
     Active Substance: REBAMIPIDE
     Route: 048
     Dates: end: 20130708
  5. VANCOMYCIN HYDROCHLORIDE. [Concomitant]
     Active Substance: VANCOMYCIN HYDROCHLORIDE
     Route: 048
     Dates: start: 20130627, end: 20130703
  6. TACROLIMUS HYDRATE [Concomitant]
     Active Substance: TACROLIMUS
     Dosage: UNK
  7. NORVASC [Concomitant]
     Active Substance: AMLODIPINE BESYLATE
     Route: 048
     Dates: end: 20130625
  8. METRONIDAZOLE. [Concomitant]
     Active Substance: METRONIDAZOLE
     Route: 048
     Dates: start: 20130604, end: 20130615
  9. AMLODIPINE [Concomitant]
     Active Substance: AMLODIPINE BESYLATE
     Dosage: 2.5 MG DAILY
     Route: 048
     Dates: start: 20130626
  10. MIYA-BM [Concomitant]
     Active Substance: CLOSTRIDIUM BUTYRICUM SPORES STRAIN M-55
     Route: 048
     Dates: end: 20130703
  11. MEROPENEM HYDRATE [Concomitant]
     Active Substance: MEROPENEM
     Route: 042
     Dates: start: 20130627, end: 2013
  12. CERTOLIZUMAB PEGOL RA [Suspect]
     Active Substance: CERTOLIZUMAB PEGOL
     Indication: RHEUMATOID ARTHRITIS
     Dosage: LAST DOSE
     Route: 058
     Dates: start: 20130610, end: 20130610
  13. MEROPENEM HYDRATE [Concomitant]
     Active Substance: MEROPENEM
     Route: 042
     Dates: start: 20130702, end: 20130710

REACTIONS (4)
  - Sepsis [Recovering/Resolving]
  - Diverticulitis [Recovering/Resolving]
  - Acute kidney injury [Fatal]
  - Nephrotic syndrome [Recovering/Resolving]

NARRATIVE: CASE EVENT DATE: 20130625
